FAERS Safety Report 10293311 (Version 3)
Quarter: 2016Q2

REPORT INFORMATION
  Report Type: Spontaneous
  Country: US (occurrence: US)
  Receive Date: 20140710
  Receipt Date: 20160621
  Transmission Date: 20160815
  Serious: Yes (Hospitalization, Other)
  Sender: FDA-Public Use
  Company Number: US-GLAXOSMITHKLINE-A1078722A

PATIENT
  Age: 81 Year
  Sex: Female

DRUGS (7)
  1. ROPINIROLE HYDROCHLORIDE. [Suspect]
     Active Substance: ROPINIROLE HYDROCHLORIDE
     Indication: PRODUCT USED FOR UNKNOWN INDICATION
  2. REQUIP XL [Suspect]
     Active Substance: ROPINIROLE HYDROCHLORIDE
     Indication: RESTLESS LEGS SYNDROME
     Dosage: UNKNOWN DOSING
     Route: 065
     Dates: start: 20100927
  3. METOPROLOL. [Concomitant]
     Active Substance: METOPROLOL
  4. PRAVASTATIN [Concomitant]
     Active Substance: PRAVASTATIN\PRAVASTATIN SODIUM
  5. RANITIDINE. [Concomitant]
     Active Substance: RANITIDINE
  6. REQUIP XL [Suspect]
     Active Substance: ROPINIROLE HYDROCHLORIDE
     Dosage: 6 MG, QD
     Route: 048
  7. GABAPENTIN. [Concomitant]
     Active Substance: GABAPENTIN

REACTIONS (5)
  - Hypertension [Unknown]
  - Dysgraphia [Not Recovered/Not Resolved]
  - Knee arthroplasty [Unknown]
  - Shoulder arthroplasty [Not Recovered/Not Resolved]
  - Procedural pain [Not Recovered/Not Resolved]

NARRATIVE: CASE EVENT DATE: 20140618
